FAERS Safety Report 8036196-2 (Version None)
Quarter: 2012Q1

REPORT INFORMATION
  Report Type: 
  Country: None (occurrence: None)
  Receive Date: 20120111
  Receipt Date: 20120102
  Transmission Date: 20120608
  Serious: Yes (Hospitalization)
  Sender: FDA-Public Use
  Company Number: FR-ELI_LILLY_AND_COMPANY-FR201201000083

PATIENT
  Sex: Male

DRUGS (5)
  1. SAXAGLIPTIN [Concomitant]
     Dosage: 5 MG, QD
     Route: 048
  2. LISINOPRIL [Concomitant]
     Dosage: 5 MG, QD
     Route: 048
  3. ATORVASTATIN CALCIUM [Concomitant]
     Dosage: 40 MG, QD
     Route: 048
  4. CIALIS [Suspect]
     Dosage: UNK, UNKNOWN
     Route: 048
     Dates: start: 20110701
  5. ACETAMINOPHEN AND TRAMADOL HCL [Concomitant]
     Dosage: 100 MG, BID
     Route: 048

REACTIONS (4)
  - CHEST PAIN [None]
  - INSOMNIA [None]
  - PAIN [None]
  - PANCREATITIS ACUTE [None]
